FAERS Safety Report 15142246 (Version 1)
Quarter: 2018Q3

REPORT INFORMATION
  Report Type: Spontaneous
  Country: US (occurrence: US)
  Receive Date: 20180713
  Receipt Date: 20180713
  Transmission Date: 20181010
  Serious: No
  Sender: FDA-Public Use
  Company Number: US-GLAXOSMITHKLINE-US2018122117

PATIENT
  Age: 56 Year
  Sex: Male

DRUGS (1)
  1. BUPROPION TABLET [Suspect]
     Active Substance: BUPROPION
     Dosage: 150 MG, UNK
     Route: 048
     Dates: start: 201805

REACTIONS (2)
  - Pruritus [Recovered/Resolved]
  - Urticaria [Recovered/Resolved]

NARRATIVE: CASE EVENT DATE: 201805
